FAERS Safety Report 9866433 (Version 2)
Quarter: 2016Q1

REPORT INFORMATION
  Report Type: Report from Study
  Country: US (occurrence: US)
  Receive Date: 20140204
  Receipt Date: 20160217
  Transmission Date: 20160526
  Serious: Yes (Other)
  Sender: FDA-Public Use
  Company Number: US-ROCHE-1342312

PATIENT
  Sex: Male
  Weight: 65.2 kg

DRUGS (8)
  1. PEGASYS [Suspect]
     Active Substance: PEGINTERFERON ALFA-2A
     Indication: CHRONIC HEPATITIS C
     Route: 058
  2. NOVOLIN [Concomitant]
     Active Substance: INSULIN HUMAN
     Dosage: NIGHTLY-INJECT INTO THE SKIN
     Route: 065
  3. LISINOPRIL. [Concomitant]
     Active Substance: LISINOPRIL
     Dosage: MORNING
     Route: 048
  4. COPEGUS [Suspect]
     Active Substance: RIBAVIRIN
     Indication: CHRONIC HEPATITIS C
     Dosage: 200 MG TABLETS TWO IN MORNING ,ONE AT NIGHT
     Route: 048
  5. KEFLEX [Concomitant]
     Active Substance: CEPHALEXIN
  6. CELEXA (UNITED STATES) [Concomitant]
     Indication: DEPRESSION
     Route: 065
  7. BENADRYL [Concomitant]
     Active Substance: DIPHENHYDRAMINE HYDROCHLORIDE
     Dosage: PRN-25 MG CAPSULE
     Route: 048
  8. NOVOLIN [Concomitant]
     Active Substance: INSULIN HUMAN
     Dosage: MORNING-INJECT INTO THE SKIN
     Route: 065

REACTIONS (2)
  - Thrombocytopenia [Unknown]
  - Leukopenia [Unknown]
